FAERS Safety Report 15499069 (Version 1)
Quarter: 2018Q4

REPORT INFORMATION
  Report Type: Spontaneous
  Country: AU (occurrence: AU)
  Receive Date: 20181015
  Receipt Date: 20181015
  Transmission Date: 20190205
  Serious: Yes (Other)
  Sender: FDA-Public Use
  Company Number: AU-JNJFOC-20181016233

PATIENT
  Age: 39 Year
  Sex: Female

DRUGS (1)
  1. RISPERDAL [Suspect]
     Active Substance: RISPERIDONE
     Indication: PSYCHOTIC DISORDER
     Route: 048
     Dates: start: 2000

REACTIONS (5)
  - Dysgeusia [Unknown]
  - Disturbance in attention [Unknown]
  - Insomnia [Unknown]
  - Somnolence [Unknown]
  - Premature menopause [Unknown]

NARRATIVE: CASE EVENT DATE: 2013
